FAERS Safety Report 7499346-2 (Version None)
Quarter: 2011Q2

REPORT INFORMATION
  Report Type: 
  Country: None (occurrence: None)
  Receive Date: 20110524
  Receipt Date: 20110513
  Transmission Date: 20111010
  Serious: Yes (Life-Threatening, Hospitalization)
  Sender: FDA-Public Use
  Company Number: FR-SANOFI-AVENTIS-2011SA031355

PATIENT
  Age: 26 Year
  Sex: Female
  Weight: 90 kg

DRUGS (5)
  1. RIFAMPIN AND ISONIAZID [Suspect]
     Indication: TUBERCULOSIS
     Dosage: DOSE:2 UNIT(S)
     Route: 048
     Dates: start: 20110326
  2. KINERET [Suspect]
     Route: 058
     Dates: start: 20100801, end: 20110409
  3. TARDYFERON /GFR/ [Concomitant]
     Route: 048
     Dates: end: 20110409
  4. PREDNISONE [Suspect]
     Route: 048
     Dates: start: 20110101
  5. MICROVAL [Concomitant]
     Route: 048

REACTIONS (6)
  - JUVENILE ARTHRITIS [None]
  - ALTERED STATE OF CONSCIOUSNESS [None]
  - INFECTION [None]
  - HISTIOCYTOSIS HAEMATOPHAGIC [None]
  - CYTOLYTIC HEPATITIS [None]
  - HEADACHE [None]
